FAERS Safety Report 5809357-8 (Version None)
Quarter: 2008Q3

REPORT INFORMATION
  Report Type: 
  Country: None (occurrence: None)
  Receive Date: 20080714
  Receipt Date: 20080709
  Transmission Date: 20090109
  Serious: Yes (Death, Hospitalization, Other)
  Sender: FDA-Public Use
  Company Number: PHEH2006US00998

PATIENT
  Sex: Male
  Weight: 90.703 kg

DRUGS (10)
  1. AREDIA [Suspect]
     Indication: MULTIPLE MYELOMA
     Dosage: 90MG Q3-4WKS
     Route: 042
     Dates: start: 19990101, end: 20020301
  2. ZOMETA [Suspect]
     Indication: MULTIPLE MYELOMA
     Dosage: 4 MG MONTHLY
     Route: 042
     Dates: start: 20010101, end: 20040924
  3. INTERFERON [Concomitant]
  4. PS 341 [Concomitant]
     Dates: start: 20030201
  5. PS 341 [Concomitant]
     Dates: start: 20030201
  6. CYCLOPHOSPHAMIDE [Concomitant]
     Dosage: 150MG BID X 5 DAYS
  7. DECADRON #1 [Concomitant]
     Dosage: 12 MG
  8. ALLOPURINOL [Concomitant]
     Dosage: 300 MG, QD
     Route: 048
  9. DEXAMETHASONE [Concomitant]
     Dosage: 32 MG, QD
     Route: 048
  10. MELPHALAN [Concomitant]

REACTIONS (45)
  - AGRANULOCYTOSIS [None]
  - ANXIETY [None]
  - APLASTIC ANAEMIA [None]
  - ATELECTASIS [None]
  - BACK PAIN [None]
  - BONE DISORDER [None]
  - BONE LESION [None]
  - CARDIAC ARREST [None]
  - CHILLS [None]
  - CHRONIC OBSTRUCTIVE PULMONARY DISEASE [None]
  - COMPRESSION FRACTURE [None]
  - DEFORMITY [None]
  - DIARRHOEA [None]
  - EMOTIONAL DISTRESS [None]
  - GENERAL PHYSICAL HEALTH DETERIORATION [None]
  - GINGIVITIS [None]
  - HIP SURGERY [None]
  - LUNG INFILTRATION [None]
  - LUNG NEOPLASM MALIGNANT [None]
  - MALIGNANT NEOPLASM PROGRESSION [None]
  - MASS [None]
  - METASTASES TO BONE [None]
  - MULTI-ORGAN FAILURE [None]
  - MUSCULOSKELETAL PAIN [None]
  - NECK PAIN [None]
  - NEUTROPENIA [None]
  - ORAL CANDIDIASIS [None]
  - ORAL DISCOMFORT [None]
  - ORAL DISORDER [None]
  - OSTEOMYELITIS [None]
  - OSTEONECROSIS [None]
  - OSTEOPENIA [None]
  - PAIN [None]
  - PNEUMONIA PNEUMOCOCCAL [None]
  - PURULENT DISCHARGE [None]
  - PYREXIA [None]
  - RADIOTHERAPY [None]
  - RENAL FAILURE ACUTE [None]
  - RESPIRATORY FAILURE [None]
  - RIB FRACTURE [None]
  - SOFT TISSUE INFECTION [None]
  - SPINAL DEFORMITY [None]
  - STEM CELL TRANSPLANT [None]
  - STREPTOCOCCAL SEPSIS [None]
  - SWELLING [None]
